FAERS Safety Report 9257708 (Version 2)
Quarter: 2013Q2

REPORT INFORMATION
  Report Type: Report from Study
  Country: US (occurrence: US)
  Receive Date: 20130426
  Receipt Date: 20130513
  Transmission Date: 20140414
  Serious: Yes (Hospitalization)
  Sender: FDA-Public Use
  Company Number: US-PFIZER INC-2013127166

PATIENT
  Age: 52 Year
  Sex: Female
  Weight: 46.5 kg

DRUGS (28)
  1. PF-04136309 [Suspect]
     Indication: PANCREATIC CARCINOMA
     Dosage: 500 MG, BID
     Route: 048
     Dates: start: 20130404, end: 20130418
  2. FLUOROURACIL [Suspect]
     Indication: PANCREATIC CARCINOMA
     Dosage: 560 MG, BOLUS
     Route: 040
     Dates: start: 20130404, end: 20130418
  3. FLUOROURACIL [Suspect]
     Dosage: 3360 MG, CIVI PUMP
     Route: 042
     Dates: start: 20130404, end: 20130418
  4. IRINOTECAN HCL [Suspect]
     Indication: PANCREATIC CARCINOMA
     Dosage: 252 MG, UNK
     Route: 042
     Dates: start: 20130404, end: 20130418
  5. ELOXATIN [Suspect]
     Indication: PANCREATIC CARCINOMA
     Dosage: 119 MG, UNK
     Dates: start: 20130404, end: 20130418
  6. LEUCOVORIN [Suspect]
     Indication: PANCREATIC CARCINOMA
     Dosage: 560 MG, UNK
     Dates: start: 20130404, end: 20130418
  7. PLAVIX [Concomitant]
  8. ASPIRIN [Concomitant]
  9. ACCOLATE [Concomitant]
  10. BUMETANIDE [Concomitant]
  11. CREON [Concomitant]
  12. DIOVAN [Concomitant]
  13. NAPROXEN SODIUM [Concomitant]
  14. RANITIDINE [Concomitant]
  15. ROBAXIN [Concomitant]
  16. SANDOSTATIN [Concomitant]
  17. SINGULAIR [Concomitant]
  18. TOPAMAX [Concomitant]
  19. TRAMADOL [Concomitant]
  20. REPAGLINIDE [Concomitant]
  21. ENOXAPARIN [Concomitant]
  22. DEXAMETHASONE [Concomitant]
  23. LOMOTIL [Concomitant]
  24. ZOFRAN [Concomitant]
  25. POTASSIUM [Concomitant]
  26. PROCHLORPERAZINE [Concomitant]
  27. VITAMIN D [Concomitant]
  28. PANTOPRAZOLE [Concomitant]

REACTIONS (1)
  - Febrile neutropenia [Recovered/Resolved]
